FAERS Safety Report 15100564 (Version 1)
Quarter: 2018Q3

REPORT INFORMATION
  Report Type: Spontaneous
  Country: FR (occurrence: FR)
  Receive Date: 20180703
  Receipt Date: 20180703
  Transmission Date: 20181010
  Serious: Yes (Hospitalization)
  Sender: FDA-Public Use
  Company Number: FR-ABBVIE-18K-056-2407072-00

PATIENT
  Age: 35 Year
  Sex: Female
  Weight: 55 kg

DRUGS (4)
  1. HUMIRA [Suspect]
     Active Substance: ADALIMUMAB
     Route: 058
     Dates: start: 2018, end: 20180421
  2. HUMIRA [Suspect]
     Active Substance: ADALIMUMAB
     Route: 058
     Dates: start: 2018, end: 2018
  3. HUMIRA [Suspect]
     Active Substance: ADALIMUMAB
     Indication: COLITIS
     Route: 058
     Dates: start: 20180323, end: 20180323
  4. TROLOVOL [Suspect]
     Active Substance: PENICILLAMINE
     Indication: HEPATO-LENTICULAR DEGENERATION
     Dosage: 1 CP/JOUR
     Route: 048
     Dates: start: 20180415, end: 20180504

REACTIONS (1)
  - Coombs positive haemolytic anaemia [Recovering/Resolving]

NARRATIVE: CASE EVENT DATE: 20180504
